FAERS Safety Report 20541209 (Version 1)
Quarter: 2022Q1

REPORT INFORMATION
  Report Type: Spontaneous
  Country: AU (occurrence: AU)
  Receive Date: 20220302
  Receipt Date: 20220302
  Transmission Date: 20220423
  Serious: Yes (Other)
  Sender: FDA-Public Use
  Company Number: AU-JNJFOC-20211021718

PATIENT
  Age: 43 Year
  Sex: Female

DRUGS (1)
  1. INVEGA [Suspect]
     Active Substance: PALIPERIDONE
     Indication: Product used for unknown indication
     Route: 048

REACTIONS (12)
  - Abdominal distension [Unknown]
  - Aggression [Unknown]
  - Chest pain [Unknown]
  - Dyspnoea [Unknown]
  - Gait disturbance [Unknown]
  - Hyperhidrosis [Unknown]
  - Infertility [Unknown]
  - Neuralgia [Unknown]
  - Spinal stenosis [Unknown]
  - Tooth loss [Unknown]
  - Vision blurred [Not Recovered/Not Resolved]
  - Weight increased [Unknown]

NARRATIVE: CASE EVENT DATE: 20170501
